FAERS Safety Report 4936365-1 (Version None)
Quarter: 2006Q1

REPORT INFORMATION
  Report Type: 
  Country: None (occurrence: None)
  Receive Date: 20060302
  Receipt Date: 20060217
  Transmission Date: 20060701
  Serious: Yes (Other)
  Sender: FDA-Public Use
  Company Number: US200602003747

PATIENT
  Age: 17 Year
  Sex: Male

DRUGS (1)
  1. SYMBYAX [Suspect]
     Indication: BIPOLAR I DISORDER

REACTIONS (1)
  - BENIGN PROSTATIC HYPERPLASIA [None]
